FAERS Safety Report 25547297 (Version 1)
Quarter: 2025Q3

REPORT INFORMATION
  Report Type: Spontaneous
  Country: US (occurrence: US)
  Receive Date: 20250714
  Receipt Date: 20250714
  Transmission Date: 20251021
  Serious: No
  Sender: STALLERGENES
  Company Number: US-STALCOR-2025-AER-01870

PATIENT
  Age: 3 Year
  Sex: Male

DRUGS (1)
  1. PALFORZIA [Suspect]
     Active Substance: PEANUT
     Indication: Food allergy
     Dosage: IDE (1-3) ADMINISTER IN A SINGLE DAY UNDER THE SUPERVISION OF AN HCP. DO NOT SWALLOW CAPSULES. 1X1MG
     Route: 048
     Dates: start: 20250509, end: 20250509

REACTIONS (2)
  - Pruritus [Recovered/Resolved]
  - Rash [Recovered/Resolved]

NARRATIVE: CASE EVENT DATE: 20250509
